FAERS Safety Report 4406737-2 (Version None)
Quarter: 2004Q3

REPORT INFORMATION
  Report Type: 
  Country: None (occurrence: None)
  Receive Date: 20040715
  Receipt Date: 20040702
  Transmission Date: 20050211
  Serious: Yes (Hospitalization)
  Sender: FDA-Public Use
  Company Number: 2004AP03459

PATIENT
  Age: 71 Year
  Sex: Female

DRUGS (3)
  1. IRESSA [Suspect]
     Indication: LUNG NEOPLASM MALIGNANT
     Dosage: 250 MG DAILY PO
     Route: 048
     Dates: start: 20040413, end: 20040701
  2. PREDONINE [Suspect]
     Dosage: 15 MG DAILY PO
     Route: 048
     Dates: start: 20040622
  3. WARFARIN SODIUM [Concomitant]

REACTIONS (2)
  - HAEMORRHAGE SUBCUTANEOUS [None]
  - X-RAY ABNORMAL [None]
